FAERS Safety Report 25953466 (Version 2)
Quarter: 2025Q4

REPORT INFORMATION
  Report Type: Spontaneous
  Country: CN (occurrence: CN)
  Receive Date: 20251023
  Receipt Date: 20251031
  Transmission Date: 20260118
  Serious: Yes (Hospitalization)
  Sender: Vantive US Healthcare
  Company Number: CN-VANTIVE-2025VAN004807

PATIENT
  Age: 23 Year
  Sex: Female

DRUGS (2)
  1. DIANEAL [Suspect]
     Active Substance: CALCIUM CHLORIDE\DEXTROSE\MAGNESIUM CHLORIDE\SODIUM CHLORIDE\SODIUM LACTATE
     Dosage: 2L, OVER FOUR CYCLES WITHOUT BED REST
     Route: 033
     Dates: start: 20170720
  2. DIANEAL [Suspect]
     Active Substance: CALCIUM CHLORIDE\DEXTROSE\MAGNESIUM CHLORIDE\SODIUM CHLORIDE\SODIUM LACTATE
     Dosage: 2L, OVER FOUR CYCLES WITHOUT BED REST (DOSE REINTRODUCED)
     Route: 033
     Dates: start: 20171011

REACTIONS (11)
  - Gastroenteritis eosinophilic [Recovered/Resolved]
  - Pyrexia [Recovered/Resolved]
  - Diarrhoea [Recovered/Resolved]
  - Abdominal discomfort [Recovered/Resolved]
  - Diarrhoea [Recovered/Resolved]
  - Decreased appetite [Recovered/Resolved]
  - Fatigue [Recovered/Resolved]
  - Symptom recurrence [Recovered/Resolved]
  - Anaemia [Recovered/Resolved]
  - Abdominal tenderness [Recovered/Resolved]
  - Ascites [Recovered/Resolved]
